FAERS Safety Report 21844820 (Version 1)
Quarter: 2023Q1

REPORT INFORMATION
  Report Type: Spontaneous
  Country: ES (occurrence: ES)
  Receive Date: 20230110
  Receipt Date: 20230110
  Transmission Date: 20230417
  Serious: Yes (Hospitalization)
  Sender: FDA-Public Use
  Company Number: None

PATIENT
  Age: 66 Year
  Sex: Male
  Weight: 90 kg

DRUGS (3)
  1. DEXAMETHASONE [Interacting]
     Active Substance: DEXAMETHASONE
     Indication: Inflammation
     Dosage: 1 CADA 12 HORAS
     Route: 042
     Dates: start: 20220524, end: 20220602
  2. IBUPROFEN [Interacting]
     Active Substance: IBUPROFEN
     Indication: Pain
     Dosage: 1 CADA 8 HORAS, IBUPROFENO (1769A)
     Route: 048
     Dates: start: 20220521, end: 20220523
  3. ASPIRIN\RAMIPRIL\SIMVASTATIN [Interacting]
     Active Substance: ASPIRIN\RAMIPRIL\SIMVASTATIN
     Indication: Acute myocardial infarction
     Dosage: TRINOMIA 100 MG/40 MG/10 MG HARD CAPSULES 28 CAPSULES
     Route: 048
     Dates: start: 20210203

REACTIONS (2)
  - Anaemia [Recovered/Resolved]
  - Gastric ulcer haemorrhage [Recovered/Resolved]

NARRATIVE: CASE EVENT DATE: 20220603
